FAERS Safety Report 18252318 (Version 1)
Quarter: 2020Q3

REPORT INFORMATION
  Report Type: Spontaneous
  Country: US (occurrence: US)
  Receive Date: 20200909
  Receipt Date: 20200909
  Transmission Date: 20201103
  Serious: Yes (Hospitalization)
  Sender: FDA-Public Use
  Company Number: None

PATIENT
  Sex: Female

DRUGS (1)
  1. BOSULIF [Suspect]
     Active Substance: BOSUTINIB MONOHYDRATE
     Route: 048
     Dates: start: 202006

REACTIONS (7)
  - Gait disturbance [None]
  - Fluid retention [None]
  - Dyspnoea [None]
  - Swelling [None]
  - Pain [None]
  - Iatrogenic injury [None]
  - Renal failure [None]
